FAERS Safety Report 24106990 (Version 3)
Quarter: 2024Q3

REPORT INFORMATION
  Report Type: Spontaneous
  Country: US (occurrence: US)
  Receive Date: 20240717
  Receipt Date: 20240726
  Transmission Date: 20241017
  Serious: Yes (Other)
  Sender: SANOFI AVENTIS
  Company Number: US-SA-SAC20240715000498

PATIENT
  Age: 57 Year
  Sex: Male

DRUGS (4)
  1. KEVZARA [Suspect]
     Active Substance: SARILUMAB
     Indication: Polymyalgia rheumatica
     Dosage: 200 MG, QOW
     Route: 058
     Dates: start: 20231028
  2. PREDNISONE [Suspect]
     Active Substance: PREDNISONE
     Indication: Inflammation
     Dosage: 20 MG
  3. PREDNISONE [Suspect]
     Active Substance: PREDNISONE
     Dosage: 2.5 MG
  4. PREDNISONE [Suspect]
     Active Substance: PREDNISONE
     Dosage: 1 MG, QOD

REACTIONS (13)
  - Paralysis [Unknown]
  - Injection site bruising [Recovering/Resolving]
  - Pain [Recovering/Resolving]
  - Mouth ulceration [Unknown]
  - Sensitive skin [Unknown]
  - Impaired quality of life [Unknown]
  - Inflammation [Unknown]
  - Fatigue [Recovering/Resolving]
  - Feeling abnormal [Unknown]
  - Cough [Recovering/Resolving]
  - Productive cough [Recovering/Resolving]
  - Nasopharyngitis [Recovering/Resolving]
  - Drug ineffective [Unknown]
